FAERS Safety Report 12100775 (Version 2)
Quarter: 2016Q1

REPORT INFORMATION
  Report Type: Spontaneous
  Country: FR (occurrence: FR)
  Receive Date: 20160222
  Receipt Date: 20160302
  Transmission Date: 20160526
  Serious: Yes (Hospitalization)
  Sender: FDA-Public Use
  Company Number: FR-TEVA-635100ISR

PATIENT
  Age: 87 Year
  Sex: Female

DRUGS (11)
  1. EXELON [Concomitant]
     Active Substance: RIVASTIGMINE TARTRATE
  2. FORLAX [Concomitant]
     Active Substance: POLYETHYLENE GLYCOL 4000
  3. GAVISCON [Concomitant]
     Active Substance: ALUMINUM HYDROXIDE\MAGNESIUM CARBONATE
  4. MODOPAR 125 DISPERSIBLE (100 MG/25 MG) [Suspect]
     Active Substance: BENSERAZIDE\LEVODOPA
     Route: 048
  5. XALACOM [Concomitant]
     Active Substance: LATANOPROST\TIMOLOL MALEATE
  6. MODOPAR LP 125 100 MG/25 MG [Suspect]
     Active Substance: BENSERAZIDE HYDROCHLORIDE\LEVODOPA
     Dosage: FORM: PROLONGED-RELEASE TABLET, 1 DF= LEVODOPA 100 MG + BENSERAZIDE 25 MG
     Route: 048
  7. CALCIDOSE [Concomitant]
     Active Substance: CALCIUM CARBONATE
  8. TRANSILANE [Concomitant]
     Active Substance: POTASSIUM BICARBONATE\PSYLLIUM HUSK
  9. PARACETAMOL [Concomitant]
     Active Substance: ACETAMINOPHEN
  10. DOMPERIDONE [Concomitant]
     Active Substance: DOMPERIDONE
  11. AZILECT [Suspect]
     Active Substance: RASAGILINE MESYLATE
     Route: 048
     Dates: end: 20150529

REACTIONS (2)
  - Orthostatic hypotension [Recovered/Resolved]
  - Altered state of consciousness [Recovered/Resolved]
